FAERS Safety Report 8861389 (Version 1)
Quarter: 2012Q4

REPORT INFORMATION
  Report Type: Spontaneous
  Country: US (occurrence: None)
  Receive Date: 20121022
  Receipt Date: 20121022
  Transmission Date: 20130627
  Serious: Yes (Other)
  Sender: FDA-Public Use
  Company Number: E2B_00000424

PATIENT
  Age: 3 Year
  Sex: Male
  Weight: 18.14 kg

DRUGS (3)
  1. CEFDINIR [Suspect]
     Indication: BRONCHITIS
     Route: 048
     Dates: start: 20121008, end: 20121010
  2. ACETAMINOPHEN (SYRUP) [Concomitant]
  3. HALL^S MENTHOL COUGH LOZENGE [Concomitant]

REACTIONS (5)
  - Vomiting [None]
  - Lip swelling [None]
  - Cheilitis [None]
  - Dizziness [None]
  - Pruritus [None]
